FAERS Safety Report 15717681 (Version 1)
Quarter: 2018Q4

REPORT INFORMATION
  Report Type: Spontaneous
  Country: US (occurrence: US)
  Receive Date: 20181213
  Receipt Date: 20181213
  Transmission Date: 20190205
  Serious: No
  Sender: FDA-Public Use
  Company Number: US-ASTELLAS-2018US020866

PATIENT
  Sex: Female

DRUGS (1)
  1. TARCEVA [Suspect]
     Active Substance: ERLOTINIB HYDROCHLORIDE
     Indication: SOFT TISSUE SARCOMA
     Route: 048
     Dates: start: 20180425

REACTIONS (4)
  - Intentional product use issue [Unknown]
  - Off label use [Unknown]
  - Nasopharyngitis [Unknown]
  - Sinusitis [Unknown]
